FAERS Safety Report 21433582 (Version 2)
Quarter: 2023Q4

REPORT INFORMATION
  Report Type: Spontaneous
  Country: US (occurrence: US)
  Receive Date: 20221010
  Receipt Date: 20231117
  Transmission Date: 20240110
  Serious: No
  Sender: FDA-Public Use
  Company Number: US-SANOFI-01308926

PATIENT
  Age: 57 Year
  Sex: Female
  Weight: 83 kg

DRUGS (1)
  1. DUPIXENT [Suspect]
     Active Substance: DUPILUMAB
     Indication: Cough
     Dosage: UNK

REACTIONS (1)
  - Product prescribing issue [Unknown]
